FAERS Safety Report 23918783 (Version 1)
Quarter: 2024Q2

REPORT INFORMATION
  Report Type: Spontaneous
  Country: US (occurrence: US)
  Receive Date: 20240530
  Receipt Date: 20240530
  Transmission Date: 20240716
  Serious: No
  Sender: FDA-Public Use
  Company Number: US-JNJFOC-20240525296

PATIENT
  Age: 61 Year
  Sex: Female
  Weight: 110 kg

DRUGS (26)
  1. IMODIUM [Suspect]
     Active Substance: LOPERAMIDE HYDROCHLORIDE
     Indication: Diarrhoea
     Dosage: 2 MG, AS NECESSARY
     Route: 065
     Dates: start: 20221102, end: 20230718
  2. LEUCOVORIN [Concomitant]
     Active Substance: LEUCOVORIN\LEUCOVORIN CALCIUM
     Indication: Pancreatic carcinoma metastatic
     Dosage: 928 MG DAY 1 AND DAY 15 OF EACH 28 DAY CYCLE; 928 MG DAY 1 AND DAY 15 OF EACH 28 DAY CYCLE
     Route: 042
     Dates: start: 20221031, end: 20230307
  3. IRINOTECAN [Concomitant]
     Active Substance: IRINOTECAN
     Indication: Pancreatic carcinoma metastatic
     Dosage: 280 MG DAY 1 AND DAY 15 OF EACH 28 DAY CYCLE; 278.4 MG DAY 1 AND DAY 15 OF EACH 28 DAY CYCLE;? 185.6
     Route: 042
  4. GILORALIMAB [Concomitant]
     Active Substance: GILORALIMAB
     Indication: Pancreatic carcinoma metastatic
     Dosage: 30 MG DAY 3 OF EACH 28 DAY CYCLE, EVERY 4 WEEKS
     Route: 042
     Dates: start: 20221102, end: 20230309
  5. BUDIGALIMAB [Concomitant]
     Active Substance: BUDIGALIMAB
     Indication: Pancreatic carcinoma metastatic
     Dosage: 500 MG DAY 3 OF EACH 28 DAY CYCLE, EVERY 4 WEEKS
     Route: 042
     Dates: start: 20221102, end: 20230309
  6. EMLA [Concomitant]
     Active Substance: LIDOCAINE\PRILOCAINE
     Indication: Pain prophylaxis
     Dosage: 2.5 %
     Route: 065
     Dates: start: 20221018, end: 20230718
  7. DULCOLAX (BISACODYL) [Concomitant]
     Active Substance: BISACODYL
     Indication: Product used for unknown indication
     Route: 065
  8. OXALIPLATIN [Concomitant]
     Active Substance: OXALIPLATIN
     Indication: Pancreatic carcinoma metastatic
     Dosage: 121.5 MG DAY 1 AND DAY 15 OF EACH 28 DAY CYCLE; 116 MG DAY 1 AND DAY 15 OF EACH 28 DAY CYCLE;? 116 M
     Route: 042
  9. FLUOROURACIL [Concomitant]
     Active Substance: FLUOROURACIL
     Indication: Pancreatic carcinoma metastatic
     Dosage: 4500 MG DAY 1, 3, 15 AND 17 OF EACH 28 DAY CYCLE; 3712 MG DAY 1, 3, 15 AND 17 OF EACH 28 DAY? CYCLE
     Route: 042
  10. FLUOROURACIL\LEUCOVORIN CALCIUM\OXALIPLATIN [Concomitant]
     Active Substance: FLUOROURACIL\LEUCOVORIN CALCIUM\OXALIPLATIN
     Indication: Product used for unknown indication
     Route: 065
  11. IBUPROFEN [Concomitant]
     Active Substance: IBUPROFEN
     Indication: Back pain
     Dosage: 200 MG, AS NECESSARY
     Route: 065
     Dates: start: 20221002, end: 20230718
  12. IBUPROFEN [Concomitant]
     Active Substance: IBUPROFEN
     Indication: Headache
  13. ZOLOFT [Concomitant]
     Active Substance: SERTRALINE HYDROCHLORIDE
     Indication: Depressive symptom
     Dosage: 50 MG, EVERY 1 DAYS
     Route: 065
     Dates: start: 20221003, end: 20230718
  14. PROTONIX [Concomitant]
     Active Substance: PANTOPRAZOLE SODIUM
     Indication: Dyspepsia
     Dosage: 40 MG, 2/DAYS
     Route: 065
     Dates: start: 202209, end: 20230718
  15. INSULIN LISPRO [Concomitant]
     Active Substance: INSULIN LISPRO
     Indication: Diabetes mellitus
     Dosage: 100 UNITS/ML IU, AS NECESSARY
     Route: 065
     Dates: start: 202209, end: 20230718
  16. HUMALOG KWIKPEN [Concomitant]
     Active Substance: INSULIN LISPRO
     Indication: Diabetes mellitus
     Dosage: 9 IU, 3/DAYS
     Route: 065
     Dates: start: 202209, end: 20230718
  17. HAMAMELIS VIRGINIANA [Concomitant]
     Active Substance: HAMAMELIS VIRGINIANA ROOT BARK/STEM BARK
     Indication: Haemorrhoids
     Dosage: 1 DOSAGE FORM COOLING PADS 1 APPLICATION, AS NECESSARY
     Dates: start: 202210, end: 20230718
  18. PROCHLORPERAZINE [Concomitant]
     Active Substance: PROCHLORPERAZINE
     Indication: Nausea
     Dosage: 10 MG, EVERY 6 HOURS
     Route: 065
     Dates: start: 202210, end: 20230718
  19. PROCHLORPERAZINE [Concomitant]
     Active Substance: PROCHLORPERAZINE
     Indication: Vomiting
  20. ZOFRAN [Concomitant]
     Active Substance: ONDANSETRON HYDROCHLORIDE
     Indication: Nausea
     Dosage: 8 MG, AS NECESSARY
     Route: 065
     Dates: start: 202210, end: 20230718
  21. ZOFRAN [Concomitant]
     Active Substance: ONDANSETRON HYDROCHLORIDE
     Indication: Vomiting
  22. AMBIEN [Concomitant]
     Active Substance: ZOLPIDEM TARTRATE
     Indication: Insomnia
     Dosage: 5 MG, EVERY 1 DAYS
     Route: 065
     Dates: start: 20221128, end: 20230402
  23. ELIQUIS [Concomitant]
     Active Substance: APIXABAN
     Indication: Pulmonary embolism
     Dosage: 5 MG, 2/DAYS
     Route: 065
     Dates: start: 20230112, end: 20230718
  24. ACETAMINOPHEN [Concomitant]
     Active Substance: ACETAMINOPHEN
     Indication: Back pain
     Dosage: 650 MG, AS NECESSARY
     Route: 065
     Dates: start: 20230220
  25. NEURONTIN [Concomitant]
     Active Substance: GABAPENTIN
     Indication: Tumour pain
     Dosage: 300 MG, EVERY 1 DAYS
     Route: 065
     Dates: start: 20230118, end: 20230718
  26. ATROPINE [Concomitant]
     Active Substance: ATROPINE\ATROPINE SULFATE
     Indication: Cholinergic syndrome
     Dosage: 0.4 MG, AS NECESSARY
     Route: 065
     Dates: start: 20230123, end: 20230505

REACTIONS (1)
  - Incorrect dose administered [Unknown]
